FAERS Safety Report 9131854 (Version 2)
Quarter: 2013Q1

REPORT INFORMATION
  Report Type: Spontaneous
  Country: US (occurrence: US)
  Receive Date: 20130301
  Receipt Date: 20130307
  Transmission Date: 20140127
  Serious: No
  Sender: FDA-Public Use
  Company Number: US-009507513-1302USA012388

PATIENT
  Sex: Female

DRUGS (2)
  1. JANUVIA [Suspect]
     Dosage: UNK
     Route: 048
     Dates: end: 201211
  2. JANUMET [Suspect]
     Indication: DIABETES MELLITUS
     Dosage: 1 TABLET TWICE A DAY
     Route: 048
     Dates: start: 201211

REACTIONS (2)
  - Abdominal pain upper [Unknown]
  - Renal pain [Unknown]
